FAERS Safety Report 18145930 (Version 2)
Quarter: 2020Q3

REPORT INFORMATION
  Report Type: Spontaneous
  Country: US (occurrence: US)
  Receive Date: 20200813
  Receipt Date: 20200820
  Transmission Date: 20201103
  Serious: Yes (Other)
  Sender: FDA-Public Use
  Company Number: US-PFIZER INC-2020306288

PATIENT
  Age: 72 Year
  Sex: Female

DRUGS (8)
  1. FLECTOR [Suspect]
     Active Substance: DICLOFENAC EPOLAMINE
     Indication: SPONDYLITIS
     Dosage: 1 DF, 2X/DAY (1 PATCH EVERY 12 HOURS)
     Route: 062
  2. ENTOCORT [Concomitant]
     Active Substance: BUDESONIDE
     Indication: CROHN^S DISEASE
  3. DURAGESIC [Concomitant]
     Active Substance: FENTANYL
     Indication: PAIN
     Dosage: 50MG, REMOVED PATCH EVERY 48 HOURS
  4. ZEGERID [OMEPRAZOLE] [Concomitant]
     Active Substance: OMEPRAZOLE
     Indication: GASTROOESOPHAGEAL REFLUX DISEASE
     Dosage: 40 MG, 1X/DAY
     Route: 048
  5. ASPIRIN [ACETYLSALICYLIC ACID] [Concomitant]
     Active Substance: ASPIRIN
     Dosage: UNK
  6. FLECTOR [Suspect]
     Active Substance: DICLOFENAC EPOLAMINE
     Indication: FIBROMYALGIA
     Dosage: 1.23 OR 1.32MG SHE THOUGHT, CHANGE PATCH EVERY 12 HOURS
     Route: 062
  7. ENTOCORT [Concomitant]
     Active Substance: BUDESONIDE
     Indication: GASTROINTESTINAL DISORDER
     Dosage: 6 MG, 1X/DAY (3MG CAPSULES, 2 CAPSULES EVERY NIGHT)
  8. GINGER [ZINGIBER OFFICINALE] [Concomitant]
     Active Substance: GINGER
     Dosage: UNK

REACTIONS (9)
  - Swollen tongue [Unknown]
  - Overweight [Unknown]
  - Application site pain [Unknown]
  - Application site injury [Unknown]
  - Hyperaesthesia [Unknown]
  - Off label use [Unknown]
  - Product use in unapproved indication [Unknown]
  - Throat tightness [Unknown]
  - Application site erythema [Unknown]
